FAERS Safety Report 17054851 (Version 1)
Quarter: 2019Q4

REPORT INFORMATION
  Report Type: Spontaneous
  Country: US (occurrence: US)
  Receive Date: 20191120
  Receipt Date: 20191120
  Transmission Date: 20200122
  Serious: Yes (Hospitalization)
  Sender: FDA-Public Use
  Company Number: US-MYLANLABS-2019M1111079

PATIENT
  Age: 21 Year
  Sex: Male

DRUGS (1)
  1. FENTANYL. [Suspect]
     Active Substance: FENTANYL
     Indication: PRODUCT USED FOR UNKNOWN INDICATION
     Route: 042

REACTIONS (5)
  - Hypoxia [Recovered/Resolved]
  - Hippocampal atrophy [Unknown]
  - Drug abuse [Unknown]
  - Amnestic disorder [Unknown]
  - Drug dependence [Unknown]
